FAERS Safety Report 9257893 (Version 1)
Quarter: 2013Q2

REPORT INFORMATION
  Report Type: Spontaneous
  Country: AU (occurrence: AU)
  Receive Date: 20130426
  Receipt Date: 20130426
  Transmission Date: 20140414
  Serious: Yes (Other)
  Sender: FDA-Public Use
  Company Number: AU-BRISTOL-MYERS SQUIBB COMPANY-18757831

PATIENT
  Age: 55 Year
  Sex: Female

DRUGS (6)
  1. BYETTA [Suspect]
     Indication: GLYCOSYLATED HAEMOGLOBIN INCREASED
     Route: 058
     Dates: start: 20120923, end: 20121123
  2. BYETTA [Suspect]
     Indication: DIABETES MELLITUS
     Route: 058
     Dates: start: 20120923, end: 20121123
  3. ZOLOFT [Concomitant]
  4. DIABETEX [Concomitant]
  5. ISOPTIN [Concomitant]
  6. VYTORIN [Concomitant]

REACTIONS (1)
  - Depression [Recovered/Resolved]
